FAERS Safety Report 7469307-8 (Version None)
Quarter: 2011Q2

REPORT INFORMATION
  Report Type: 
  Country: None (occurrence: None)
  Receive Date: 20110429
  Receipt Date: 20110415
  Transmission Date: 20111010
  Serious: Yes (Hospitalization, Other)
  Sender: FDA-Public Use
  Company Number: US-002227

PATIENT
  Age: 51 Year
  Sex: Male

DRUGS (3)
  1. TRAZODONE HCL [Suspect]
     Dosage: 300 MG, AT BEDTIME
  2. LITHIUM CARBONATE [Suspect]
     Dosage: 450 MG, IN THE MORNING, (600 MG AT BEDTIME)
  3. ACETAMINOPHEN AND OXYCODONE HCL [Suspect]
     Dosage: AS DOUBLE UP (TAKEN IN THE MORNING 5/500 MG))

REACTIONS (10)
  - DEHYDRATION [None]
  - PAIN [None]
  - INCORRECT DOSE ADMINISTERED [None]
  - BLOOD CREATININE INCREASED [None]
  - DELIRIUM [None]
  - ENCEPHALOPATHY [None]
  - TOXICITY TO VARIOUS AGENTS [None]
  - GASTROINTESTINAL DISORDER [None]
  - BLOOD UREA INCREASED [None]
  - GASTRIC BYPASS [None]
